FAERS Safety Report 22180953 (Version 2)
Quarter: 2023Q2

REPORT INFORMATION
  Report Type: Report from Study
  Country: IT (occurrence: IT)
  Receive Date: 20230406
  Receipt Date: 20230412
  Transmission Date: 20230721
  Serious: Yes (Hospitalization)
  Sender: FDA-Public Use
  Company Number: None

PATIENT
  Age: 89 Year
  Sex: Male

DRUGS (8)
  1. ELIQUIS [Suspect]
     Active Substance: APIXABAN
     Indication: Cerebrovascular accident prophylaxis
     Dosage: DOSAGGIO: 10?UNITA DI MISURA: MILLIGRAMMI?FREQUENZA SOMMINISTRAZIONE: QUOTIDIANA?VIA SOMMINISTRAZION
     Route: 048
  2. ELIQUIS [Suspect]
     Active Substance: APIXABAN
  3. ASPIRIN [Suspect]
     Active Substance: ASPIRIN
     Indication: Prophylaxis
     Dosage: DOSAGGIO: 100?UNITA DI MISURA: MILLIGRAMMI?FREQUENZA SOMMINISTRAZIONE: QUOTIDIANA?VIA SOMMINISTRAZIO
     Route: 048
  4. FUROSEMIDE\SPIRONOLACTONE [Concomitant]
     Active Substance: FUROSEMIDE\SPIRONOLACTONE
     Indication: Hyperaldosteronism
     Dosage: DOSAGGIO: 1?UNITA DI MISURA: UNITA POSOLOGICA?VIA SOMMINISTRAZIONE: ORALE
     Route: 048
  5. CITALOPRAM [Concomitant]
     Active Substance: CITALOPRAM HYDROBROMIDE
     Indication: Product used for unknown indication
     Dosage: DOSAGGIO: 10?UNITA DI MISURA: GOCCE?VIA SOMMINISTRAZIONE: ORALE
     Route: 048
     Dates: start: 20220624
  6. ATORVASTATIN [Concomitant]
     Active Substance: ATORVASTATIN
     Indication: Dyslipidaemia
     Dosage: DOSAGGIO: 40?UNITA DI MISURA: MILLIGRAMMI?VIA SOMMINISTRAZIONE: ORALE
     Route: 048
  7. PANTOPRAZOLE SODIUM [Concomitant]
     Active Substance: PANTOPRAZOLE SODIUM
     Indication: Gastritis
     Dosage: DOSAGGIO: 40 UNITA DI MISURA: MILLIGRAMMI VIA SOMMINISTRAZIONE: ORALE
     Route: 048
  8. RANEXA [Concomitant]
     Active Substance: RANOLAZINE
     Indication: Angina pectoris
     Route: 048

REACTIONS (5)
  - Epistaxis [Recovered/Resolved]
  - Asthenia [Recovered/Resolved]
  - Anaemia [Recovered/Resolved]
  - Haematuria [Recovered/Resolved]
  - Intentional product use issue [Unknown]

NARRATIVE: CASE EVENT DATE: 20220826
